FAERS Safety Report 8427139-8 (Version None)
Quarter: 2012Q2

REPORT INFORMATION
  Report Type: 
  Country: None (occurrence: None)
  Receive Date: 20120601
  Receipt Date: 20120523
  Transmission Date: 20120825
  Serious: Yes (Hospitalization, Other)
  Sender: FDA-Public Use
  Company Number: 2011SP048511

PATIENT
  Age: 10 Year
  Sex: Male
  Weight: 25.6 kg

DRUGS (8)
  1. DILAUDID [Concomitant]
  2. ETOPOSIDE [Suspect]
     Indication: NEUROBLASTOMA
     Dates: start: 20110914, end: 20110918
  3. CYCLOPHOSPHAMIDE [Suspect]
     Indication: NEUROBLASTOMA
     Dates: start: 20110914, end: 20110918
  4. CARBOPLATIN [Suspect]
     Indication: NEUROBLASTOMA
     Dates: start: 20110914, end: 20110918
  5. HYDROMORPHONE HCL [Concomitant]
  6. TEMODAR [Suspect]
     Indication: NEUROBLASTOMA
     Dates: start: 20110914, end: 20110918
  7. IRINOTECAN HCL [Suspect]
     Indication: NEUROBLASTOMA
     Dates: start: 20110914, end: 20110918
  8. MLN8237 [Suspect]
     Indication: NEUROBLASTOMA
     Dosage: QD;PO
     Route: 048
     Dates: start: 20110822, end: 20110828

REACTIONS (7)
  - OESOPHAGEAL PAIN [None]
  - FEBRILE NEUTROPENIA [None]
  - ABDOMINAL PAIN UPPER [None]
  - PLATELET COUNT DECREASED [None]
  - MUCOSAL INFLAMMATION [None]
  - HYPOPHAGIA [None]
  - ANAEMIA [None]
